FAERS Safety Report 23839816 (Version 1)
Quarter: 2024Q2

REPORT INFORMATION
  Report Type: Spontaneous
  Country: CN (occurrence: None)
  Receive Date: 20240510
  Receipt Date: 20240510
  Transmission Date: 20240715
  Serious: Yes (Hospitalization, Other)
  Sender: FDA-Public Use
  Company Number: 2024A105862

PATIENT
  Age: 62 Year
  Sex: Female
  Weight: 60 kg

DRUGS (2)
  1. IMFINZI [Suspect]
     Active Substance: DURVALUMAB
     Indication: Hepatocellular carcinoma
     Route: 042
     Dates: start: 20230301, end: 20230301
  2. REGORAFENIB [Suspect]
     Active Substance: REGORAFENIB
     Indication: Hepatocellular carcinoma
     Route: 048
     Dates: start: 20230301, end: 20240430

REACTIONS (1)
  - Toxic epidermal necrolysis [Recovering/Resolving]

NARRATIVE: CASE EVENT DATE: 20230310
